FAERS Safety Report 12188539 (Version 1)
Quarter: 2016Q1

REPORT INFORMATION
  Report Type: Report from Study
  Country: CO (occurrence: CO)
  Receive Date: 20160317
  Receipt Date: 20160317
  Transmission Date: 20160526
  Serious: Yes (Other)
  Sender: FDA-Public Use
  Company Number: CO-JNJFOC-20160313523

PATIENT
  Age: 30 Year
  Sex: Female
  Weight: 84 kg

DRUGS (1)
  1. STELARA [Suspect]
     Active Substance: USTEKINUMAB
     Indication: PSORIASIS
     Route: 058
     Dates: start: 20150907

REACTIONS (1)
  - Flavivirus infection [Recovered/Resolved]

NARRATIVE: CASE EVENT DATE: 20160225
